FAERS Safety Report 15805405 (Version 1)
Quarter: 2019Q1

REPORT INFORMATION
  Report Type: Spontaneous
  Country: DK (occurrence: DK)
  Receive Date: 20190110
  Receipt Date: 20190110
  Transmission Date: 20190417
  Serious: Yes (Hospitalization)
  Sender: FDA-Public Use
  Company Number: DK-TEVA-2019-DK-997021

PATIENT
  Age: 50 Year
  Sex: Female

DRUGS (3)
  1. CLOPIDOGREL [Concomitant]
     Active Substance: CLOPIDOGREL BISULFATE
     Indication: THROMBOSIS PROPHYLAXIS
     Dosage: 75 MILLIGRAM DAILY;
     Route: 048
     Dates: start: 20181113
  2. ATORVASTATIN ^TEVA^ [Suspect]
     Active Substance: ATORVASTATIN
     Indication: CEREBROVASCULAR ACCIDENT
     Dosage: 80 MILLIGRAM DAILY;
     Route: 048
     Dates: start: 20181113, end: 20181126
  3. ACETYLSALICYLIC ACID [Concomitant]
     Active Substance: ASPIRIN
     Indication: THROMBOSIS PROPHYLAXIS
     Dosage: 75 MILLIGRAM DAILY;
     Route: 048
     Dates: start: 20181126, end: 20181203

REACTIONS (10)
  - Malaise [Recovering/Resolving]
  - Pyrexia [Recovering/Resolving]
  - Blood lactate dehydrogenase increased [Recovering/Resolving]
  - Blood alkaline phosphatase increased [Recovering/Resolving]
  - Nausea [Recovering/Resolving]
  - Arthralgia [Recovering/Resolving]
  - Gamma-glutamyltransferase increased [Recovering/Resolving]
  - Blood bilirubin increased [Recovering/Resolving]
  - Hepatitis toxic [Recovering/Resolving]
  - Alanine aminotransferase increased [Recovering/Resolving]

NARRATIVE: CASE EVENT DATE: 201811
